FAERS Safety Report 25213479 (Version 1)
Quarter: 2025Q2

REPORT INFORMATION
  Report Type: Spontaneous
  Country: US (occurrence: None)
  Receive Date: 20250417
  Receipt Date: 20250417
  Transmission Date: 20250716
  Serious: Yes (Death)
  Sender: FDA-CTU
  Company Number: None

PATIENT
  Age: 52 Year
  Sex: Male
  Weight: 72.45 kg

DRUGS (2)
  1. BREYANZI [Suspect]
     Active Substance: LISOCABTAGENE MARALEUCEL
     Indication: B-cell lymphoma refractory
     Route: 042
     Dates: start: 20230425, end: 20230425
  2. BREYANZI [Suspect]
     Active Substance: LISOCABTAGENE MARALEUCEL
     Indication: Diffuse large B-cell lymphoma

REACTIONS (3)
  - Diffuse large B-cell lymphoma recurrent [None]
  - Lymphocyte adoptive therapy [None]
  - Sepsis [None]

NARRATIVE: CASE EVENT DATE: 20250417
